FAERS Safety Report 24247359 (Version 1)
Quarter: 2024Q3

REPORT INFORMATION
  Report Type: Spontaneous
  Country: GB (occurrence: GB)
  Receive Date: 20240826
  Receipt Date: 20240826
  Transmission Date: 20241016
  Serious: Yes (Other)
  Sender: TEVA
  Company Number: GB-MHRA-TPP25240340C17459774YC1723736655835

PATIENT
  Age: 82 Year
  Sex: Male
  Weight: 74 kg

DRUGS (15)
  1. PREGABALIN [Suspect]
     Active Substance: PREGABALIN
     Indication: Ill-defined disorder
     Route: 065
     Dates: start: 20240805
  2. MIRTAZAPINE [Concomitant]
     Active Substance: MIRTAZAPINE
     Indication: Ill-defined disorder
     Dosage: 1 TABLET, TPP YC - PLEASE RECLASSIFY
     Dates: start: 20230810
  3. OLANZAPINE [Concomitant]
     Active Substance: OLANZAPINE
     Indication: Ill-defined disorder
     Dosage: 1 TABLET, TPP YC - PLEASE RECLASSIFY
     Dates: start: 20240729, end: 20240802
  4. GATALIN [Concomitant]
     Indication: Ill-defined disorder
     Dosage: TPP YC - PLEASE RECLASSIFY
     Dates: start: 20230809
  5. MEMANTINE [Concomitant]
     Active Substance: MEMANTINE
     Indication: Ill-defined disorder
     Dosage: TPP YC - PLEASE RECLASSIFY
     Dates: start: 20230911
  6. LORAZEPAM [Concomitant]
     Active Substance: LORAZEPAM
     Indication: Ill-defined disorder
     Dosage: TIME INTERVAL: 0.33333333 DAYS: TPP YC - PLEASE RECLASSIFY
     Dates: start: 20230911
  7. ASPIRIN [Concomitant]
     Active Substance: ASPIRIN
     Indication: Ill-defined disorder
     Dosage: TPP YC - PLEASE RECLASSIFY
     Dates: start: 20230809
  8. BLEPHACLEAN [Concomitant]
     Indication: Ill-defined disorder
     Dosage: 1 APPLICATION(S) UNCHECKED UNITS, TPP YC - PLEASE RECLASSIFY
     Dates: start: 20240809
  9. MACROGOL COMPOUND [Concomitant]
     Indication: Ill-defined disorder
     Dosage: 1-2 SACHET, TPP YC - PLEASE RECLASSIFY
     Dates: start: 20240531, end: 20240620
  10. SIMVASTATIN [Concomitant]
     Active Substance: SIMVASTATIN
     Indication: Ill-defined disorder
     Dosage: TAKE ONE AT NIGHT TO LOWER CHOLESTEROL. AVOID G..., TPP YC - PLEASE RECLASSIFY
     Dates: start: 20230809
  11. NITROGLYCERIN [Concomitant]
     Active Substance: NITROGLYCERIN
     Indication: Ill-defined disorder
     Dosage: TREATMENT OR PROPHYLAXIS OF. CHEST PAIN(ANGINA)..., TPP YC - PLEASE RECLASSIFY
     Dates: start: 20230809
  12. QUETIAPINE [Concomitant]
     Active Substance: QUETIAPINE
     Indication: Ill-defined disorder
     Dosage: 1 TABLET, TPP YC - PLEASE RECLASSIFY
     Dates: start: 20240620, end: 20240717
  13. DIAZEPAM [Concomitant]
     Active Substance: DIAZEPAM
     Indication: Ill-defined disorder
     Dosage: 1 TABLET, TPP YC - PLEASE RECLASSIFY
     Dates: start: 20240717
  14. ISOSORBIDE MONONITRATE [Concomitant]
     Active Substance: ISOSORBIDE MONONITRATE
     Indication: Ill-defined disorder
     Dosage: TAKE ONE AT 8AM AND ONE AT 3PM TO HELP CONTROL ..., TPP YC - PLEASE RECLASSIFY
     Dates: start: 20230809
  15. HYLO TEAR [Concomitant]
     Indication: Ill-defined disorder
     Dosage: USE TO BE TAKEN FOUR TIMES DAILY WHEN REQUIRED ..., TPP YC - PLEASE RECLASSIFY
     Dates: start: 20230809

REACTIONS (2)
  - Musculoskeletal stiffness [Not Recovered/Not Resolved]
  - Peripheral swelling [Not Recovered/Not Resolved]
